FAERS Safety Report 5173250-7 (Version None)
Quarter: 2006Q4

REPORT INFORMATION
  Report Type: 
  Country: None (occurrence: None)
  Receive Date: 20061214
  Receipt Date: 20061201
  Transmission Date: 20070319
  Serious: Yes (Hospitalization)
  Sender: FDA-Public Use
  Company Number: CL-BRISTOL-MYERS SQUIBB COMPANY-13604327

PATIENT
  Weight: 3 kg

DRUGS (1)
  1. MITOMYCIN [Suspect]
     Indication: LARYNGEAL PAPILLOMA
     Route: 061

REACTIONS (7)
  - BRONCHOPULMONARY ASPERGILLOSIS [None]
  - INFLUENZA [None]
  - LARYNGITIS [None]
  - PNEUMONIA VIRAL [None]
  - RESPIRATORY FAILURE [None]
  - STAPHYLOCOCCAL INFECTION [None]
  - TRACHEITIS [None]
